FAERS Safety Report 5869771-1 (Version None)
Quarter: 2008Q3

REPORT INFORMATION
  Report Type: 
  Country: None (occurrence: None)
  Receive Date: 20080904
  Receipt Date: 20080828
  Transmission Date: 20090109
  Serious: Yes (Other)
  Sender: FDA-Public Use
  Company Number: GB-ROCHE-583219

PATIENT
  Age: 15 Year
  Sex: Female
  Weight: 44 kg

DRUGS (2)
  1. ISOTRETINOIN [Suspect]
     Indication: ACNE
     Route: 048
     Dates: start: 20080712, end: 20080805
  2. CALCICHEW D3 [Concomitant]
     Indication: COELIAC DISEASE
     Dosage: OTHER INDICATION: OSTEOPENIA
     Route: 048
     Dates: start: 20040101

REACTIONS (7)
  - DEPRESSION [None]
  - EPISTAXIS [None]
  - NIGHT BLINDNESS [None]
  - PHOTOPHOBIA [None]
  - POLLAKIURIA [None]
  - SUICIDAL IDEATION [None]
  - THIRST [None]
